FAERS Safety Report 18451905 (Version 1)
Quarter: 2020Q4

REPORT INFORMATION
  Report Type: Spontaneous
  Country: US (occurrence: US)
  Receive Date: 20201030
  Receipt Date: 20201030
  Transmission Date: 20210114
  Serious: Yes (Hospitalization, Disabling)
  Sender: FDA-Public Use
  Company Number: None

PATIENT
  Age: 31 Year
  Sex: Male
  Weight: 83.25 kg

DRUGS (10)
  1. HYDROCORTISONE. [Concomitant]
     Active Substance: HYDROCORTISONE
  2. MAGNESIUM [Concomitant]
     Active Substance: MAGNESIUM
  3. COENZYME Q10 [Concomitant]
     Active Substance: DIETARY SUPPLEMENT\UBIDECARENONE
  4. CLYNDAMYCIN BENZOIL PEROXIDE [Concomitant]
  5. PROBIOTIC [Concomitant]
     Active Substance: PROBIOTICS NOS
  6. MULTIVITAMIN [Concomitant]
     Active Substance: VITAMINS
  7. TURMERIC [Concomitant]
     Active Substance: HERBALS\TURMERIC
  8. DICYCLOMINE [Concomitant]
     Active Substance: DICYCLOMINE HYDROCHLORIDE
  9. FISH OIL [Concomitant]
     Active Substance: FISH OIL
  10. CIPROFLOXACIN. [Suspect]
     Active Substance: CIPROFLOXACIN
     Indication: BACTERIAL INFECTION
     Dates: start: 20201014, end: 20201018

REACTIONS (14)
  - Arthralgia [None]
  - Paraesthesia [None]
  - Cold sweat [None]
  - Anxiety [None]
  - Disturbance in attention [None]
  - Limb discomfort [None]
  - Neuropathy peripheral [None]
  - Insomnia [None]
  - Muscle injury [None]
  - Gait disturbance [None]
  - Tendon pain [None]
  - Vitreous floaters [None]
  - Feeling abnormal [None]
  - Nerve injury [None]

NARRATIVE: CASE EVENT DATE: 20201014
